FAERS Safety Report 7096886-5 (Version None)
Quarter: 2010Q4

REPORT INFORMATION
  Report Type: 
  Country: None (occurrence: None)
  Receive Date: 20101111
  Receipt Date: 20100108
  Transmission Date: 20110411
  Serious: No
  Sender: FDA-Public Use
  Company Number: US-KINGPHARMUSA00001-K201000042

PATIENT
  Sex: Female

DRUGS (1)
  1. FLECTOR [Suspect]
     Dosage: UNK
     Route: 061

REACTIONS (2)
  - DYSPNOEA [None]
  - HEART RATE INCREASED [None]
